FAERS Safety Report 6839240-0 (Version None)
Quarter: 2010Q3

REPORT INFORMATION
  Report Type: 
  Country: None (occurrence: None)
  Receive Date: 20100714
  Receipt Date: 20100705
  Transmission Date: 20110219
  Serious: Yes (Hospitalization, Other)
  Sender: FDA-Public Use
  Company Number: CA-JNJFOC-20100700234

PATIENT
  Sex: Female
  Weight: 69.9 kg

DRUGS (20)
  1. REMICADE [Suspect]
     Indication: RHEUMATOID ARTHRITIS
     Route: 042
  2. REMICADE [Suspect]
     Route: 042
  3. ADVAIR DISKUS 100/50 [Concomitant]
     Indication: ASTHMA
     Route: 055
  4. ADVAIR DISKUS 100/50 [Concomitant]
     Route: 055
  5. NEXIUM [Concomitant]
     Indication: GASTROOESOPHAGEAL REFLUX DISEASE
     Route: 048
  6. HYDROCHLOROTHIAZIDE [Concomitant]
     Route: 048
  7. FOLIC ACID [Concomitant]
     Indication: PROPHYLAXIS
     Route: 048
  8. METHOTREXATE [Concomitant]
     Indication: RHEUMATOID ARTHRITIS
  9. VITAMIN D [Concomitant]
  10. XALATAN [Concomitant]
     Indication: GLAUCOMA
  11. LYRICA [Concomitant]
     Indication: PAIN
     Route: 048
  12. LYRICA [Concomitant]
     Route: 048
  13. LYRICA [Concomitant]
     Route: 048
  14. LYRICA [Concomitant]
     Route: 048
  15. SEROQUEL [Concomitant]
  16. SEROQUEL [Concomitant]
  17. CELEBREX [Concomitant]
     Indication: ARTHRITIS
  18. CELEBREX [Concomitant]
  19. ZOLOFT [Concomitant]
     Indication: DEPRESSION
  20. ZOLOFT [Concomitant]

REACTIONS (1)
  - LIVER DISORDER [None]
